FAERS Safety Report 5532867-8 (Version None)
Quarter: 2007Q4

REPORT INFORMATION
  Report Type: 
  Country: None (occurrence: None)
  Receive Date: 20071129
  Receipt Date: 20071129
  Transmission Date: 20080405
  Serious: No
  Sender: FDA-Public Use
  Company Number: None

PATIENT

DRUGS (1)
  1. CIPRO [Suspect]

REACTIONS (15)
  - ABDOMINAL PAIN UPPER [None]
  - ANXIETY [None]
  - ARTHRALGIA [None]
  - ASTHENIA [None]
  - HALLUCINATION [None]
  - HEADACHE [None]
  - INSOMNIA [None]
  - MUSCLE DISORDER [None]
  - MUSCLE TWITCHING [None]
  - NIGHTMARE [None]
  - PAIN [None]
  - PALPITATIONS [None]
  - PARAESTHESIA [None]
  - PHOTOPHOBIA [None]
  - TENDON PAIN [None]
